FAERS Safety Report 20638019 (Version 1)
Quarter: 2022Q1

REPORT INFORMATION
  Report Type: Spontaneous
  Country: US (occurrence: US)
  Receive Date: 20220325
  Receipt Date: 20220325
  Transmission Date: 20220424
  Serious: Yes (Other)
  Sender: FDA-Public Use
  Company Number: US-TEVA-2022-US-2021535

PATIENT
  Age: 31 Year
  Sex: Male

DRUGS (17)
  1. VORICONAZOLE [Suspect]
     Active Substance: VORICONAZOLE
     Indication: Acanthamoeba keratitis
     Dosage: 400 MILLIGRAM DAILY;
     Route: 048
  2. VORICONAZOLE [Suspect]
     Active Substance: VORICONAZOLE
     Indication: Acanthamoeba keratitis
     Route: 061
  3. VORICONAZOLE [Suspect]
     Active Substance: VORICONAZOLE
     Route: 061
  4. VORICONAZOLE [Suspect]
     Active Substance: VORICONAZOLE
     Dosage: 50 MICROGRAM/0.1ML; RECEIVED TWO INTRASTROMAL INJECTIONS
     Route: 050
  5. POVIDONE-IODINE [Suspect]
     Active Substance: POVIDONE-IODINE
     Indication: Acanthamoeba keratitis
     Route: 065
  6. OFLOXACIN [Suspect]
     Active Substance: OFLOXACIN
     Indication: Acanthamoeba keratitis
     Route: 061
  7. OFLOXACIN [Suspect]
     Active Substance: OFLOXACIN
     Route: 061
  8. BACITRACIN ZINC\NEOMYCIN SULFATE\POLYMYXIN B SULFATE [Suspect]
     Active Substance: BACITRACIN ZINC\NEOMYCIN SULFATE\POLYMYXIN B SULFATE
     Indication: Acanthamoeba keratitis
     Dosage: 3.5MG/10,000 UNITS FOUR TIMES A DAY
     Route: 061
  9. BACITRACIN ZINC\NEOMYCIN SULFATE\POLYMYXIN B SULFATE [Suspect]
     Active Substance: BACITRACIN ZINC\NEOMYCIN SULFATE\POLYMYXIN B SULFATE
     Dosage: AT BEDTIME; 3.5MG/10,000 UNITS FOUR TIMES A DAY
     Route: 061
  10. CHLORHEXIDINE [Suspect]
     Active Substance: CHLORHEXIDINE
     Indication: Acanthamoeba keratitis
     Route: 061
  11. CHLORHEXIDINE [Suspect]
     Active Substance: CHLORHEXIDINE
     Route: 061
  12. POLIHEXANIDE [Suspect]
     Active Substance: POLIHEXANIDE
     Indication: Acanthamoeba keratitis
     Route: 061
  13. POLIHEXANIDE [Suspect]
     Active Substance: POLIHEXANIDE
     Route: 061
  14. DEXAMETHASONE\NEOMYCIN SULFATE\POLYMYXIN B SULFATE [Suspect]
     Active Substance: DEXAMETHASONE\NEOMYCIN SULFATE\POLYMYXIN B SULFATE
     Indication: Acanthamoeba keratitis
     Dosage: 3.5 MG/10,000 UNITS/0.1%
     Route: 061
  15. PROPAMIDINE ISETHIONATE [Suspect]
     Active Substance: PROPAMIDINE ISETHIONATE
     Indication: Acanthamoeba keratitis
     Route: 065
  16. ACETAMINOPHEN [Suspect]
     Active Substance: ACETAMINOPHEN
     Indication: Acanthamoeba keratitis
     Route: 048
  17. MILTEFOSINE [Suspect]
     Active Substance: MILTEFOSINE
     Indication: Acanthamoeba keratitis
     Dosage: 150 MILLIGRAM DAILY;
     Route: 048

REACTIONS (3)
  - Abdominal discomfort [Unknown]
  - Drug intolerance [Unknown]
  - Drug ineffective [Unknown]
